FAERS Safety Report 25219802 (Version 2)
Quarter: 2025Q2

REPORT INFORMATION
  Report Type: Spontaneous
  Country: US (occurrence: US)
  Receive Date: 20250421
  Receipt Date: 20250507
  Transmission Date: 20250716
  Serious: No
  Sender: VERTEX
  Company Number: US-VERTEX PHARMACEUTICALS-2025-006202

PATIENT
  Age: 10 Year
  Sex: Female

DRUGS (1)
  1. ALYFTREK [Suspect]
     Active Substance: DEUTIVACAFTOR\TEZACAFTOR\VANZACAFTOR
     Indication: Cystic fibrosis
     Dosage: 3 TABS DAILY (4MG VANZA/ 20MG TEZA/ 50MG DEUTIVA), ONCE DAILY
     Route: 048
     Dates: start: 20250324, end: 2025

REACTIONS (4)
  - Drug eruption [Recovered/Resolved]
  - Viral rash [Recovered/Resolved]
  - Metapneumovirus infection [Unknown]
  - Rhinovirus infection [Unknown]

NARRATIVE: CASE EVENT DATE: 20250301
